FAERS Safety Report 13571509 (Version 1)
Quarter: 2017Q2

REPORT INFORMATION
  Report Type: Spontaneous
  Country: US (occurrence: US)
  Receive Date: 20170523
  Receipt Date: 20170523
  Transmission Date: 20170830
  Serious: No
  Sender: FDA-Public Use
  Company Number: US-PFIZER INC-2017220595

PATIENT
  Sex: Male

DRUGS (1)
  1. XELJANZ [Suspect]
     Active Substance: TOFACITINIB CITRATE
     Dosage: 5 MG, UNK

REACTIONS (13)
  - Swelling [Recovering/Resolving]
  - Musculoskeletal discomfort [Recovering/Resolving]
  - Arthropathy [Recovering/Resolving]
  - Joint swelling [Recovering/Resolving]
  - Dyspnoea [Unknown]
  - Discomfort [Recovering/Resolving]
  - Synovitis [Unknown]
  - Tenderness [Unknown]
  - Pain [Recovering/Resolving]
  - Joint range of motion decreased [Recovering/Resolving]
  - Trigger finger [Unknown]
  - Arthralgia [Recovering/Resolving]
  - Back pain [Unknown]
